FAERS Safety Report 23019440 (Version 1)
Quarter: 2023Q4

REPORT INFORMATION
  Report Type: Other
  Country: DE (occurrence: DE)
  Receive Date: 20231003
  Receipt Date: 20231003
  Transmission Date: 20240110
  Serious: Yes (Other)
  Sender: FDA-Public Use
  Company Number: DE-CELLTRION INC.-2023DE018797

PATIENT

DRUGS (2)
  1. INFLIXIMAB [Suspect]
     Active Substance: INFLIXIMAB
     Indication: Crohn^s disease
     Dosage: VIAL, UNKNOWN
     Route: 042
     Dates: start: 2017
  2. COVID-19 VACCINE [Concomitant]
     Indication: Product used for unknown indication
     Dosage: UNKNOWN, 3 TIMES
     Route: 065

REACTIONS (3)
  - Renal failure [Unknown]
  - Lupus-like syndrome [Not Recovered/Not Resolved]
  - Stenosis [Unknown]
